FAERS Safety Report 10278471 (Version 1)
Quarter: 2014Q3

REPORT INFORMATION
  Report Type: Spontaneous
  Country: CA (occurrence: CA)
  Receive Date: 20140704
  Receipt Date: 20140704
  Transmission Date: 20150326
  Serious: Yes (Other)
  Sender: FDA-Public Use
  Company Number: PHHY2014CA081955

PATIENT
  Age: 30 Year
  Sex: Male

DRUGS (4)
  1. CLOZAPINE. [Suspect]
     Active Substance: CLOZAPINE
     Dosage: 50 MG,DAILY
  2. CLOZAPINE. [Suspect]
     Active Substance: CLOZAPINE
     Dosage: 150 MG, DAILY
  3. CLOZAPINE. [Suspect]
     Active Substance: CLOZAPINE
     Indication: EXTRAPYRAMIDAL DISORDER
     Dosage: 25 MG, DAILY
  4. CLOZAPINE. [Suspect]
     Active Substance: CLOZAPINE
     Dosage: 100 MG, DAILY

REACTIONS (3)
  - Salivary hypersecretion [Unknown]
  - Retrograde ejaculation [Unknown]
  - Sedation [Unknown]
